FAERS Safety Report 5639882-4 (Version None)
Quarter: 2008Q1

REPORT INFORMATION
  Report Type: 
  Country: None (occurrence: None)
  Receive Date: 20080225
  Receipt Date: 20080211
  Transmission Date: 20080703
  Serious: Yes (Hospitalization)
  Sender: FDA-Public Use
  Company Number: B0508984A

PATIENT
  Age: 57 Year
  Sex: Male

DRUGS (12)
  1. AUGMENTIN [Suspect]
     Indication: COUGH
     Dosage: ORAL
     Route: 048
     Dates: start: 20071112, end: 20071117
  2. CEFADROXIL [Suspect]
     Indication: TEMPERATURE INTOLERANCE
     Dosage: ORAL
     Route: 048
     Dates: start: 20071103, end: 20071109
  3. TRIMETAZIDINE HCL [Concomitant]
  4. OMACOR [Concomitant]
  5. CLOPIDOGREL BISULFATE [Concomitant]
  6. ATORVASTATIN CALCIUM [Concomitant]
  7. ATENOLOL [Concomitant]
  8. PRAZEPAM [Concomitant]
  9. VENLAFAXINE HYDROCHLORIDE [Concomitant]
  10. LOPERAMIDE HYDROCHLORIDE [Concomitant]
  11. ANETHOLE TRITHIONE [Concomitant]
  12. SALIVATION INDUC.MEDICAT. [Concomitant]

REACTIONS (1)
  - SERUM SICKNESS [None]
